FAERS Safety Report 24304462 (Version 1)
Quarter: 2024Q3

REPORT INFORMATION
  Report Type: Spontaneous
  Country: US (occurrence: None)
  Receive Date: 20240910
  Receipt Date: 20240910
  Transmission Date: 20241017
  Serious: Yes (Hospitalization, Other)
  Sender: Public
  Company Number: None

PATIENT
  Age: 71 Year
  Sex: Female

DRUGS (1)
  1. VENCLEXTA [Suspect]
     Active Substance: VENETOCLAX
     Dates: start: 20240605, end: 20240909

REACTIONS (9)
  - Fatigue [None]
  - Pain in extremity [None]
  - Abdominal pain upper [None]
  - Blood test abnormal [None]
  - Neutrophil count abnormal [None]
  - Platelet count decreased [None]
  - Paraesthesia [None]
  - Burning sensation [None]
  - Therapy interrupted [None]

NARRATIVE: CASE EVENT DATE: 20240909
